FAERS Safety Report 13709449 (Version 10)
Quarter: 2019Q1

REPORT INFORMATION
  Report Type: Report from Study
  Country: US (occurrence: US)
  Receive Date: 20170703
  Receipt Date: 20190118
  Transmission Date: 20190417
  Serious: Yes (Hospitalization, Other)
  Sender: FDA-Public Use
  Company Number: US-BRISTOL-MYERS SQUIBB COMPANY-BMS-2017-032856

PATIENT
  Age: 59 Year
  Sex: Female
  Weight: 53.52 kg

DRUGS (6)
  1. VINBLASTINE                        /00115802/ [Suspect]
     Active Substance: VINBLASTINE SULFATE
     Indication: CHEMOTHERAPY
     Dosage: UNK
     Route: 065
     Dates: start: 20161230
  2. NIVOLUMAB [Suspect]
     Active Substance: NIVOLUMAB
     Indication: HODGKIN^S DISEASE
     Dosage: UNK
     Route: 065
  3. ADRIAMYCIN [Suspect]
     Active Substance: DOXORUBICIN HYDROCHLORIDE
     Indication: CHEMOTHERAPY
     Dosage: UNK
     Route: 065
     Dates: start: 20161230
  4. VALTREX [Suspect]
     Active Substance: VALACYCLOVIR HYDROCHLORIDE
     Indication: PRODUCT USED FOR UNKNOWN INDICATION
     Dosage: UNK
     Route: 065
  5. DACARBAZINE. [Suspect]
     Active Substance: DACARBAZINE
     Indication: CHEMOTHERAPY
     Dosage: UNK
     Route: 065
     Dates: start: 20161230
  6. BLEOMYCIN SULFATE [Suspect]
     Active Substance: BLEOMYCIN SULFATE
     Indication: CHEMOTHERAPY
     Dosage: UNK
     Route: 065
     Dates: start: 20161230

REACTIONS (7)
  - Packed red blood cell transfusion [Unknown]
  - Thrombocytopenia [Recovered/Resolved]
  - Metabolic encephalopathy [Unknown]
  - Anaemia [Recovered/Resolved]
  - Mental status changes [Recovered/Resolved]
  - Urinary tract infection [Recovered/Resolved]
  - Nausea [Recovered/Resolved]

NARRATIVE: CASE EVENT DATE: 20170122
